FAERS Safety Report 8327088-X (Version None)
Quarter: 2012Q2

REPORT INFORMATION
  Report Type: 
  Country: None (occurrence: None)
  Receive Date: 20120501
  Receipt Date: 20120424
  Transmission Date: 20120825
  Serious: Yes (Hospitalization)
  Sender: FDA-Public Use
  Company Number: FR-MERCK-1204FRA00112

PATIENT
  Age: 93 Year
  Sex: Female

DRUGS (3)
  1. SINEMET [Suspect]
     Route: 048
     Dates: end: 20120101
  2. SINEMET [Suspect]
     Indication: PARKINSON'S DISEASE
     Route: 048
     Dates: start: 20120101, end: 20120419
  3. VERAPAMIL HYDROCHLORIDE [Concomitant]
     Indication: EXTRASYSTOLES
     Route: 048
     Dates: start: 19700101

REACTIONS (4)
  - FALL [None]
  - APATHY [None]
  - HYPOTENSION [None]
  - SOMNOLENCE [None]
